FAERS Safety Report 23260152 (Version 1)
Quarter: 2023Q4

REPORT INFORMATION
  Report Type: Spontaneous
  Country: JP (occurrence: JP)
  Receive Date: 20231204
  Receipt Date: 20231204
  Transmission Date: 20240110
  Serious: Yes (Other)
  Sender: FDA-Public Use
  Company Number: JP-JNJFOC-20231204967

PATIENT
  Age: 49 Year
  Sex: Female

DRUGS (5)
  1. RISPERDAL [Suspect]
     Active Substance: RISPERIDONE
     Indication: Postoperative delirium
     Dosage: DOSE UNKNOWN
     Route: 048
  2. FENTANYL [Concomitant]
     Active Substance: FENTANYL\FENTANYL CITRATE
     Indication: Analgesic therapy
     Dosage: DOSE UNKNOWN
     Route: 041
  3. DROPERIDOL [Concomitant]
     Active Substance: DROPERIDOL
     Indication: Analgesic therapy
     Dosage: DOSE UNKNOWN
     Route: 041
  4. DIAZEPAM [Concomitant]
     Active Substance: DIAZEPAM
     Indication: Dystonia
     Dosage: DOSE UNKNOWN
     Route: 065
  5. BIPERIDEN HYDROCHLORIDE [Concomitant]
     Active Substance: BIPERIDEN HYDROCHLORIDE
     Dosage: DOSE UNKNOWN
     Route: 048

REACTIONS (2)
  - Autonomic neuropathy [Recovered/Resolved]
  - Off label use [Unknown]
